FAERS Safety Report 16108303 (Version 2)
Quarter: 2019Q2

REPORT INFORMATION
  Report Type: Spontaneous
  Country: PT (occurrence: PT)
  Receive Date: 20190322
  Receipt Date: 20190411
  Transmission Date: 20190711
  Serious: Yes (Death, Hospitalization, Other)
  Sender: FDA-Public Use
  Company Number: PHHY2019PT065121

PATIENT
  Age: 73 Year
  Sex: Male

DRUGS (3)
  1. SULFAMETHOXAZOLE [Concomitant]
     Active Substance: SULFAMETHOXAZOLE
     Indication: PRODUCT USED FOR UNKNOWN INDICATION
     Dosage: UNK
     Route: 065
  2. FUROSEMIDE. [Suspect]
     Active Substance: FUROSEMIDE
     Indication: PRODUCT USED FOR UNKNOWN INDICATION
     Dosage: 200 MG, QD
     Route: 065
  3. CEFTRIAXONE. [Suspect]
     Active Substance: CEFTRIAXONE
     Indication: PRODUCT USED FOR UNKNOWN INDICATION
     Route: 065

REACTIONS (18)
  - Fatigue [Unknown]
  - Periarthritis [Not Recovered/Not Resolved]
  - Flushing [Unknown]
  - Bursitis [Unknown]
  - Diastolic dysfunction [Unknown]
  - Polyarthritis [Unknown]
  - Radiculopathy [Unknown]
  - Pyrexia [Unknown]
  - Oedema [Unknown]
  - Septic shock [Fatal]
  - Hypoaesthesia [Unknown]
  - Chronic respiratory disease [Unknown]
  - Erysipelas [Recovered/Resolved]
  - Bone lesion [Unknown]
  - Dyspnoea [Unknown]
  - POEMS syndrome [Unknown]
  - Haemangioma [Unknown]
  - Oedema peripheral [Not Recovered/Not Resolved]
